FAERS Safety Report 4684219-0 (Version None)
Quarter: 2005Q2

REPORT INFORMATION
  Report Type: 
  Country: None (occurrence: None)
  Receive Date: 20050531
  Receipt Date: 20050405
  Transmission Date: 20051028
  Serious: Yes (Other)
  Sender: FDA-Public Use
  Company Number: USA041081108

PATIENT
  Sex: Male

DRUGS (4)
  1. ZYPREXA [Suspect]
     Dates: start: 20020101
  2. ATENOLOL [Concomitant]
  3. METHADONE HCL [Concomitant]
  4. HYDROCODONE [Concomitant]

REACTIONS (2)
  - HALLUCINATION [None]
  - WEIGHT INCREASED [None]
